FAERS Safety Report 8573406-7 (Version None)
Quarter: 2012Q3

REPORT INFORMATION
  Report Type: 
  Country: None (occurrence: None)
  Receive Date: 20120806
  Receipt Date: 20120725
  Transmission Date: 20120928
  Serious: Yes (Life-Threatening, Hospitalization, Other)
  Sender: FDA-Public Use
  Company Number: BR-BRISTOL-MYERS SQUIBB COMPANY-16833196

PATIENT
  Age: 58 Year
  Sex: Male
  Weight: 95 kg

DRUGS (2)
  1. COMBIVIR [Suspect]
     Indication: HIV INFECTION
     Route: 048
     Dates: start: 20071114
  2. EFAVIRENZ [Suspect]
     Indication: HIV INFECTION
     Route: 048
     Dates: start: 20071114

REACTIONS (4)
  - UPPER LIMB FRACTURE [None]
  - TYPE 2 DIABETES MELLITUS [None]
  - FALL [None]
  - ATRIAL FIBRILLATION [None]
